FAERS Safety Report 9096016 (Version 2)
Quarter: 2014Q1

REPORT INFORMATION
  Report Type: Report from Study
  Country: CA (occurrence: CA)
  Receive Date: 20130207
  Receipt Date: 20140120
  Transmission Date: 20141002
  Serious: Yes (Hospitalization)
  Sender: FDA-Public Use
  Company Number: CA-JNJFOC-20130116232

PATIENT
  Age: 29 Year
  Sex: Female
  Weight: 69 kg

DRUGS (5)
  1. REMICADE [Suspect]
     Indication: CROHN^S DISEASE
     Route: 042
     Dates: start: 20100709
  2. IMURAN [Concomitant]
     Indication: CROHN^S DISEASE
     Route: 048
  3. TECTA [Concomitant]
     Indication: GASTROOESOPHAGEAL REFLUX DISEASE
     Route: 065
  4. CIPRALEX [Concomitant]
     Indication: BIPOLAR DISORDER
     Route: 048
  5. SEROQUEL [Concomitant]
     Indication: BIPOLAR DISORDER
     Route: 048

REACTIONS (2)
  - Meningitis [Recovered/Resolved]
  - Brain oedema [Recovered/Resolved]
